FAERS Safety Report 8374279-8 (Version None)
Quarter: 2012Q2

REPORT INFORMATION
  Report Type: 
  Country: None (occurrence: None)
  Receive Date: 20120518
  Receipt Date: 20120518
  Transmission Date: 20120825
  Serious: Yes (Other)
  Sender: FDA-Public Use
  Company Number: None

PATIENT
  Age: 45 Year
  Sex: Female

DRUGS (2)
  1. DOCETAXEL [Suspect]
     Indication: BREAST CANCER
     Dosage: 130MG EVERY 3 WEEKS IV DRIP ONLY ONE INFUSION SO FAR
     Route: 041
     Dates: start: 20120504, end: 20120504
  2. DOCETAXEL [Suspect]

REACTIONS (2)
  - DERMATITIS ACNEIFORM [None]
  - PRODUCT SUBSTITUTION ISSUE [None]
